FAERS Safety Report 6569277-0 (Version None)
Quarter: 2010Q1

REPORT INFORMATION
  Report Type: 
  Country: None (occurrence: None)
  Receive Date: 20100201
  Receipt Date: 20100201
  Transmission Date: 20100710
  Serious: No
  Sender: FDA-Public Use
  Company Number: None

PATIENT
  Sex: Female
  Weight: 68.0396 kg

DRUGS (2)
  1. CLONAZEPAM [Suspect]
     Indication: ANXIETY
     Dosage: 1 MG Q HS ORAL
     Route: 048
     Dates: start: 19940101
  2. CLONAZEPAM [Suspect]
     Indication: ANXIETY
     Dosage: 1 MG Q HS ORAL
     Route: 048
     Dates: start: 19980101

REACTIONS (4)
  - ACTIVITIES OF DAILY LIVING IMPAIRED [None]
  - IMPAIRED WORK ABILITY [None]
  - INSOMNIA [None]
  - SLEEP TERROR [None]
